FAERS Safety Report 9031210 (Version 2)
Quarter: 2015Q4

REPORT INFORMATION
  Report Type: Spontaneous
  Country: US (occurrence: US)
  Receive Date: 20130123
  Receipt Date: 20151026
  Transmission Date: 20160305
  Serious: No
  Sender: FDA-Public Use
  Company Number: US-ASTRAZENECA-2013SE03343

PATIENT
  Sex: Male
  Weight: 99.8 kg

DRUGS (8)
  1. CLONIDINE. [Concomitant]
     Active Substance: CLONIDINE
     Route: 048
     Dates: start: 2007
  2. MIRALAX [Concomitant]
     Active Substance: POLYETHYLENE GLYCOL 3350
  3. BUPRENORPHINE. [Concomitant]
     Active Substance: BUPRENORPHINE
     Indication: PAIN
     Route: 060
     Dates: start: 2007
  4. VALIUM [Concomitant]
     Active Substance: DIAZEPAM
     Indication: ANXIETY
     Route: 048
     Dates: start: 2007
  5. MOVANTIK [Suspect]
     Active Substance: NALOXEGOL OXALATE
     Indication: CONSTIPATION
     Route: 048
     Dates: start: 201510, end: 201510
  6. CORTICOSTEROID NOS [Concomitant]
     Active Substance: CORTICOSTEROID NOS
     Indication: SKIN DISORDER
     Dosage: AS REQUIRED
     Route: 062
  7. NEXIUM [Suspect]
     Active Substance: ESOMEPRAZOLE MAGNESIUM
     Route: 048
  8. AMITIZA [Concomitant]
     Active Substance: LUBIPROSTONE

REACTIONS (6)
  - Nausea [Unknown]
  - Coeliac disease [Unknown]
  - Chest pain [Unknown]
  - Malaise [Unknown]
  - Decreased appetite [Unknown]
  - Drug ineffective [Unknown]
